FAERS Safety Report 19651962 (Version 4)
Quarter: 2021Q4

REPORT INFORMATION
  Report Type: Spontaneous
  Country: US (occurrence: US)
  Receive Date: 20210803
  Receipt Date: 20211011
  Transmission Date: 20220303
  Serious: No
  Sender: FDA-Public Use
  Company Number: US-PFIZER INC-2021846255

PATIENT
  Age: 16 Year
  Sex: Male
  Weight: 48.99 kg

DRUGS (2)
  1. GENOTROPIN [Suspect]
     Active Substance: SOMATROPIN
     Indication: Puberty
     Dosage: 2 MG, 1X/DAY (2 MG INJECTION ONCE EVERY EVENING)
  2. GENOTROPIN [Suspect]
     Active Substance: SOMATROPIN
     Indication: Growth disorder

REACTIONS (3)
  - Device use error [Unknown]
  - Poor quality device used [Unknown]
  - Device breakage [Unknown]
